FAERS Safety Report 7561218-2 (Version None)
Quarter: 2011Q2

REPORT INFORMATION
  Report Type: 
  Country: None (occurrence: None)
  Receive Date: 20110621
  Receipt Date: 20100629
  Transmission Date: 20111010
  Serious: No
  Sender: FDA-Public Use
  Company Number: US-ASTRAZENECA-2010SE30282

PATIENT
  Age: 55 Year
  Sex: Female
  Weight: 195 kg

DRUGS (12)
  1. PULMICORT [Suspect]
     Indication: CHRONIC OBSTRUCTIVE PULMONARY DISEASE
     Route: 055
     Dates: start: 20100501
  2. FORADIL [Concomitant]
     Indication: CHRONIC OBSTRUCTIVE PULMONARY DISEASE
  3. DARVOCET WITH CODEINE [Concomitant]
     Indication: PAIN
  4. ASPIRIN [Concomitant]
  5. OXYGEN [Concomitant]
     Indication: CHRONIC OBSTRUCTIVE PULMONARY DISEASE
  6. MONOPRIL [Concomitant]
     Indication: HYPERTENSION
  7. DILTIAZEM [Concomitant]
     Indication: HYPERTENSION
  8. IPRATROPIUM BROMIDE [Concomitant]
     Indication: CHRONIC OBSTRUCTIVE PULMONARY DISEASE
  9. LASIX [Concomitant]
  10. RANITIDINE [Concomitant]
     Indication: ABDOMINAL DISCOMFORT
  11. THEOPHYLLINE [Concomitant]
     Indication: CHRONIC OBSTRUCTIVE PULMONARY DISEASE
  12. SPIRIVA [Concomitant]
     Indication: CHRONIC OBSTRUCTIVE PULMONARY DISEASE

REACTIONS (2)
  - DYSGEUSIA [None]
  - TREMOR [None]
